FAERS Safety Report 5331025-X (Version None)
Quarter: 2007Q2

REPORT INFORMATION
  Report Type: 
  Country: None (occurrence: None)
  Receive Date: 20070517
  Receipt Date: 20070511
  Transmission Date: 20071010
  Serious: Yes (Death, Other)
  Sender: FDA-Public Use
  Company Number: 066-20785-07050721

PATIENT
  Sex: 0

DRUGS (4)
  1. THALOMID [Suspect]
     Indication: MULTIPLE MYELOMA
     Dosage: 100 MG, QD, ORAL
     Route: 048
  2. DEXAMETHASONE TAB [Suspect]
     Indication: MULTIPLE MYELOMA
     Dosage: 12 MG/M2, QD DAYS, 1-4, 17-20 Q4W
  3. VELCADE [Suspect]
     Indication: MULTIPLE MYELOMA
     Dosage: 1.0 MG/M2, ON DAYS 1,4,8,11 Q28D, INTRAVENOUS
     Route: 042
  4. MELPHALAN (MELPHALAN) [Suspect]
     Indication: MULTIPLE MYELOMA
     Dosage: 0.15 MG/KG, DAYS 1-4

REACTIONS (10)
  - ANAEMIA [None]
  - DRUG TOXICITY [None]
  - FATIGUE [None]
  - HYPONATRAEMIA [None]
  - INFECTION [None]
  - NECROTISING FASCIITIS [None]
  - NEUROPATHY [None]
  - NEUTROPENIA [None]
  - SEPSIS [None]
  - THROMBOCYTOPENIA [None]
